FAERS Safety Report 21446758 (Version 1)
Quarter: 2022Q4

REPORT INFORMATION
  Report Type: Spontaneous
  Country: US (occurrence: US)
  Receive Date: 20221012
  Receipt Date: 20221012
  Transmission Date: 20230112
  Serious: No
  Sender: FDA-Public Use
  Company Number: US-PFIZER INC-202201218285

PATIENT
  Age: 79 Year
  Sex: Male

DRUGS (1)
  1. BRAFTOVI [Suspect]
     Active Substance: ENCORAFENIB
     Indication: Malignant melanoma
     Dosage: 6 DF, 1X/DAY
     Route: 048

REACTIONS (3)
  - Foreign body in gastrointestinal tract [Unknown]
  - Poor quality product administered [Unknown]
  - Product coating issue [Unknown]
